FAERS Safety Report 15264582 (Version 6)
Quarter: 2020Q2

REPORT INFORMATION
  Report Type: Report from Study
  Country: IE (occurrence: IE)
  Receive Date: 20180810
  Receipt Date: 20200609
  Transmission Date: 20200713
  Serious: Yes (Hospitalization, Other)
  Sender: FDA-Public Use
  Company Number: PHHY2018IE060428

PATIENT
  Age: 86 Year
  Sex: Female
  Weight: 70.25 kg

DRUGS (1)
  1. RIBOCICLIB. [Suspect]
     Active Substance: RIBOCICLIB
     Indication: BREAST CANCER METASTATIC
     Dosage: 600 MG
     Route: 048
     Dates: start: 20180323

REACTIONS (19)
  - Mean cell haemoglobin increased [Not Recovered/Not Resolved]
  - Alanine aminotransferase increased [Recovered/Resolved]
  - Protein total increased [Recovered/Resolved]
  - Monocyte count decreased [Unknown]
  - Lung infiltration [Recovered/Resolved]
  - Vision blurred [Recovering/Resolving]
  - Globulins increased [Recovered/Resolved]
  - Red cell distribution width increased [Unknown]
  - Blood creatinine increased [Recovered/Resolved]
  - Dry eye [Recovering/Resolving]
  - Respiratory disorder [Recovered/Resolved]
  - Red blood cell count decreased [Not Recovered/Not Resolved]
  - Lymphocyte count decreased [Not Recovered/Not Resolved]
  - Dyspnoea [Recovering/Resolving]
  - Leukopenia [Recovered/Resolved]
  - Thrombocytopenia [Not Recovered/Not Resolved]
  - Blood urea increased [Recovered/Resolved]
  - Mean cell volume increased [Unknown]
  - Aspartate aminotransferase increased [Recovered/Resolved]

NARRATIVE: CASE EVENT DATE: 20180730
